FAERS Safety Report 6191635-7 (Version None)
Quarter: 2009Q2

REPORT INFORMATION
  Report Type: 
  Country: None (occurrence: None)
  Receive Date: 20090515
  Receipt Date: 20090507
  Transmission Date: 20091009
  Serious: Yes (Death)
  Sender: FDA-Public Use
  Company Number: US-PFIZER INC-2009210369

PATIENT
  Sex: Male

DRUGS (1)
  1. EMCYT [Suspect]
     Dosage: 140 MG

REACTIONS (1)
  - DEATH [None]
